FAERS Safety Report 9198024 (Version 1)
Quarter: 2013Q1

REPORT INFORMATION
  Report Type: Spontaneous
  Country: NL (occurrence: NL)
  Receive Date: 20130328
  Receipt Date: 20130328
  Transmission Date: 20140127
  Serious: Yes (Other)
  Sender: FDA-Public Use
  Company Number: NL-GILEAD-2013-0071746

PATIENT
  Sex: Male

DRUGS (10)
  1. EVIPLERA [Suspect]
     Indication: HIV INFECTION
     Dosage: UNK
     Dates: start: 20120716, end: 20130315
  2. TEMAZEPAM [Concomitant]
  3. OXAZEPAM [Concomitant]
  4. ESCITALOPRAM [Concomitant]
  5. OLANZAPINE [Concomitant]
  6. GAMMA-BUTYROLACTONE [Concomitant]
  7. METHYLENEDIOXYMETHAMPHETAMINE [Concomitant]
  8. COCAINE [Concomitant]
  9. HEROIN [Concomitant]
  10. TEA, GREEN [Concomitant]

REACTIONS (3)
  - Genotype drug resistance test positive [Unknown]
  - Virologic failure [Unknown]
  - Genotype drug resistance test positive [Unknown]
